FAERS Safety Report 16145085 (Version 1)
Quarter: 2019Q2

REPORT INFORMATION
  Report Type: Spontaneous
  Country: IT (occurrence: IT)
  Receive Date: 20190402
  Receipt Date: 20190402
  Transmission Date: 20190711
  Serious: Yes (Other)
  Sender: FDA-Public Use
  Company Number: IT-TEVA-2019-IT-1031983

PATIENT
  Age: 32 Year
  Sex: Female

DRUGS (3)
  1. VALPROIC ACID. [Suspect]
     Active Substance: VALPROIC ACID
     Indication: EPILEPSY
     Dosage: 900 MILLIGRAM DAILY;
     Route: 048
     Dates: start: 20190302
  2. TEGRETOL [Suspect]
     Active Substance: CARBAMAZEPINE
     Indication: EPILEPSY
     Dosage: 600 MILLIGRAM DAILY;
     Route: 048
     Dates: start: 20190217
  3. FRISIUM 10 MG CAPSULE RIGIDE [Concomitant]
     Active Substance: CLOBAZAM
     Route: 048
     Dates: start: 20190217

REACTIONS (5)
  - Overdose [Recovered/Resolved]
  - Aphasia [Recovered/Resolved]
  - Fall [Recovered/Resolved]
  - Dysmetria [Recovered/Resolved]
  - Diplopia [Recovered/Resolved]

NARRATIVE: CASE EVENT DATE: 20190302
